FAERS Safety Report 8436966-2 (Version None)
Quarter: 2012Q2

REPORT INFORMATION
  Report Type: 
  Country: None (occurrence: None)
  Receive Date: 20120323
  Receipt Date: 20110913
  Transmission Date: 20120825
  Serious: Yes (Hospitalization)
  Sender: FDA-Public Use
  Company Number: 163-21880-11064019

PATIENT
  Age: 62 Year
  Sex: Male

DRUGS (11)
  1. REVLIMID [Suspect]
     Indication: MULTIPLE MYELOMA
     Dosage: 10 MG, 1 IN 1 D, PO; 5MG, 1 IN 1 D,PO; 10MG, DAILY DAYS 1-14 OF 21-DAY CYCLE, PO
     Route: 048
     Dates: start: 20110701
  2. REVLIMID [Suspect]
     Indication: MULTIPLE MYELOMA
     Dosage: 10 MG, 1 IN 1 D, PO; 5MG, 1 IN 1 D,PO; 10MG, DAILY DAYS 1-14 OF 21-DAY CYCLE, PO
     Route: 048
     Dates: start: 20100730, end: 20100101
  3. REVLIMID [Suspect]
     Indication: MULTIPLE MYELOMA
     Dosage: 10 MG, 1 IN 1 D, PO; 5MG, 1 IN 1 D,PO; 10MG, DAILY DAYS 1-14 OF 21-DAY CYCLE, PO
     Route: 048
     Dates: start: 20100801, end: 20100101
  4. DEXAMETHASONE [Concomitant]
  5. PRILOSEC [Concomitant]
  6. ALLOPURINOL [Concomitant]
  7. PROCHLORPERAZINE MALEATE (PROCHLORPERAZINE MALEATE) [Concomitant]
  8. CYTOXAN [Concomitant]
  9. VITAMIN D [Concomitant]
  10. OXYCONTIN [Concomitant]
  11. LORAZEPAM [Concomitant]

REACTIONS (4)
  - PANCYTOPENIA [None]
  - RENAL FAILURE ACUTE [None]
  - MULTIPLE MYELOMA [None]
  - EPISTAXIS [None]
